FAERS Safety Report 9643495 (Version 2)
Quarter: 2013Q4

REPORT INFORMATION
  Report Type: Spontaneous
  Country: US (occurrence: US)
  Receive Date: 20131024
  Receipt Date: 20131024
  Transmission Date: 20140711
  Serious: Yes (Death, Other)
  Sender: FDA-Public Use
  Company Number: US-SA-POMP-1001585

PATIENT
  Age: 32 Year
  Sex: Female
  Weight: 122 kg

DRUGS (1)
  1. LUMIZYME [Suspect]
     Indication: GLYCOGEN STORAGE DISEASE TYPE II
     Dosage: 1250 MG, QW
     Route: 042
     Dates: start: 20101111

REACTIONS (2)
  - Completed suicide [Fatal]
  - Neoplasm malignant [Unknown]
